FAERS Safety Report 7445156-1 (Version None)
Quarter: 2011Q2

REPORT INFORMATION
  Report Type: 
  Country: None (occurrence: None)
  Receive Date: 20110427
  Receipt Date: 20110427
  Transmission Date: 20111010
  Serious: No
  Sender: FDA-Public Use
  Company Number: None

PATIENT
  Age: 86 Year
  Sex: Male

DRUGS (1)
  1. TRAZODONE HCL [Suspect]
     Indication: SLEEP DISORDER
     Dosage: 25 MG AT BEDTIME PO
     Route: 048
     Dates: start: 20110404, end: 20110406

REACTIONS (1)
  - RASH [None]
